FAERS Safety Report 6131121-3 (Version None)
Quarter: 2009Q1

REPORT INFORMATION
  Report Type: 
  Country: None (occurrence: None)
  Receive Date: 20090325
  Receipt Date: 20090319
  Transmission Date: 20090719
  Serious: Yes (Death)
  Sender: FDA-Public Use
  Company Number: US-AMGEN-KDL339512

PATIENT
  Sex: Male

DRUGS (7)
  1. PROCRIT [Suspect]
     Indication: DRUG USE FOR UNKNOWN INDICATION
     Route: 065
  2. MICAFUNGIN SODIUM [Concomitant]
  3. MAXIPIME [Concomitant]
  4. NOREPINEPHRINE [Concomitant]
  5. PROTONIX [Concomitant]
  6. DIPRIVAN [Concomitant]
  7. PIPERACILLIN SODIUM AND TAZOBACTAM SODIUM [Concomitant]

REACTIONS (1)
  - SEPSIS [None]
